FAERS Safety Report 7610016-X (Version None)
Quarter: 2011Q3

REPORT INFORMATION
  Report Type: 
  Country: None (occurrence: None)
  Receive Date: 20110714
  Receipt Date: 20110705
  Transmission Date: 20111222
  Serious: Yes (Other)
  Sender: FDA-Public Use
  Company Number: CA-ASTRAZENECA-2011SE40577

PATIENT
  Age: 80 Year
  Sex: Female

DRUGS (6)
  1. SEROQUEL [Suspect]
     Indication: INSOMNIA
     Route: 048
     Dates: start: 20090101
  2. PRILOSEC [Suspect]
     Route: 048
  3. VITAMIN D [Concomitant]
  4. PRAVASTATIN [Concomitant]
  5. DIDROCAL [Concomitant]
  6. ATENOLOL [Concomitant]

REACTIONS (8)
  - MEMORY IMPAIRMENT [None]
  - BONE DENSITY DECREASED [None]
  - MULTIPLE ALLERGIES [None]
  - GASTROOESOPHAGEAL REFLUX DISEASE [None]
  - WRONG TECHNIQUE IN DRUG USAGE PROCESS [None]
  - DYSURIA [None]
  - DISTURBANCE IN ATTENTION [None]
  - GASTROINTESTINAL INFLAMMATION [None]
